FAERS Safety Report 14353911 (Version 1)
Quarter: 2018Q1

REPORT INFORMATION
  Report Type: Spontaneous
  Country: DE (occurrence: DE)
  Receive Date: 20180105
  Receipt Date: 20180105
  Transmission Date: 20180509
  Serious: Yes (Disabling)
  Sender: FDA-Public Use
  Company Number: DE-CONCORDIA PHARMACEUTICALS INC.-GSH201801-000033

PATIENT
  Age: 49 Year
  Sex: Male

DRUGS (4)
  1. HYDROXYCHLOROQUINE 200 MG TABLET [Suspect]
     Active Substance: HYDROXYCHLOROQUINE
     Indication: PRODUCT USED FOR UNKNOWN INDICATION
     Route: 048
     Dates: start: 20161114, end: 20161120
  2. HYDROXYCHLOROQUINE 200 MG TABLET [Suspect]
     Active Substance: HYDROXYCHLOROQUINE
     Route: 048
     Dates: start: 20170101
  3. HYDROXYCHLOROQUINE 200 MG TABLET [Suspect]
     Active Substance: HYDROXYCHLOROQUINE
     Route: 048
     Dates: start: 20161121, end: 20161204
  4. HYDROXYCHLOROQUINE 200 MG TABLET [Suspect]
     Active Substance: HYDROXYCHLOROQUINE
     Route: 048
     Dates: start: 20161205, end: 20170101

REACTIONS (3)
  - Gastrointestinal disorder [Not Recovered/Not Resolved]
  - Diarrhoea [Not Recovered/Not Resolved]
  - Flatulence [Not Recovered/Not Resolved]

NARRATIVE: CASE EVENT DATE: 201703
